FAERS Safety Report 11837785 (Version 2)
Quarter: 2015Q4

REPORT INFORMATION
  Report Type: Spontaneous
  Country: PK (occurrence: PK)
  Receive Date: 20151215
  Receipt Date: 20151229
  Transmission Date: 20160305
  Serious: Yes (Death)
  Sender: FDA-Public Use
  Company Number: PK-PFIZER INC-2015436815

PATIENT
  Age: 45 Year

DRUGS (1)
  1. SUTENT [Suspect]
     Active Substance: SUNITINIB MALATE
     Dosage: UNK

REACTIONS (1)
  - Death [Fatal]

NARRATIVE: CASE EVENT DATE: 201510
